FAERS Safety Report 6606664-6 (Version None)
Quarter: 2010Q1

REPORT INFORMATION
  Report Type: 
  Country: None (occurrence: None)
  Receive Date: 20100226
  Receipt Date: 20100217
  Transmission Date: 20100710
  Serious: Yes (Other)
  Sender: FDA-Public Use
  Company Number: GB-ASTRAZENECA-2010SE06924

PATIENT
  Age: 18 Year
  Sex: Female
  Weight: 87.5 kg

DRUGS (2)
  1. LIDOCAINE [Suspect]
     Route: 058
  2. IMPLANON [Suspect]
     Route: 058
     Dates: start: 20091217

REACTIONS (1)
  - INFECTION [None]
